FAERS Safety Report 11379344 (Version 2)
Quarter: 2015Q3

REPORT INFORMATION
  Report Type: Spontaneous
  Country: US (occurrence: US)
  Receive Date: 20150813
  Receipt Date: 20150827
  Transmission Date: 20151125
  Serious: Yes (Hospitalization, Other)
  Sender: FDA-Public Use
  Company Number: US-009507513-1508USA005185

PATIENT
  Age: 72 Year
  Sex: Male

DRUGS (3)
  1. ENTEREG [Suspect]
     Active Substance: ALVIMOPAN
     Dosage: 12 MG/ONE TIME
     Route: 048
     Dates: start: 20150810, end: 20150810
  2. METOPROLOL [Concomitant]
     Active Substance: METOPROLOL
  3. PROCARDIA [Concomitant]
     Active Substance: NIFEDIPINE

REACTIONS (1)
  - Myocardial infarction [Not Recovered/Not Resolved]

NARRATIVE: CASE EVENT DATE: 20150810
